FAERS Safety Report 5620090-8 (Version None)
Quarter: 2008Q1

REPORT INFORMATION
  Report Type: 
  Country: None (occurrence: None)
  Receive Date: 20080208
  Receipt Date: 20080206
  Transmission Date: 20080703
  Serious: Yes (Life-Threatening, Hospitalization, Disabling, Other)
  Sender: FDA-Public Use
  Company Number: US-MERCK-0801USA03738

PATIENT
  Age: 68 Year
  Sex: Female

DRUGS (8)
  1. JANUVIA [Suspect]
     Route: 048
     Dates: start: 20061201, end: 20070901
  2. COUMADIN [Concomitant]
     Route: 065
  3. VERAPAMIL [Concomitant]
     Route: 065
  4. LEVOXYL [Concomitant]
     Route: 065
  5. PREMARIN [Concomitant]
     Route: 065
  6. LOPRESSOR [Concomitant]
     Route: 065
  7. OMEPRAZOLE [Concomitant]
     Route: 065
  8. ELMIRON [Concomitant]
     Route: 065

REACTIONS (1)
  - IMPAIRED GASTRIC EMPTYING [None]
